FAERS Safety Report 5079318-8 (Version None)
Quarter: 2006Q3

REPORT INFORMATION
  Report Type: 
  Country: None (occurrence: None)
  Receive Date: 20060814
  Receipt Date: 20060803
  Transmission Date: 20061208
  Serious: Yes (Other)
  Sender: FDA-Public Use
  Company Number: 2006GB01355

PATIENT
  Age: 11 Year
  Sex: Male

DRUGS (3)
  1. LOSEC [Suspect]
     Indication: GASTROOESOPHAGEAL REFLUX DISEASE
     Route: 048
     Dates: start: 20050801
  2. RIVOTRIL [Concomitant]
     Indication: EPILEPSY
  3. VIGABATRIN [Concomitant]
     Indication: EPILEPSY
     Route: 048

REACTIONS (2)
  - DERMATITIS DIAPER [None]
  - HAEMORRHAGE [None]
